FAERS Safety Report 14303554 (Version 1)
Quarter: 2017Q4

REPORT INFORMATION
  Report Type: Spontaneous
  Country: GB (occurrence: GB)
  Receive Date: 20171219
  Receipt Date: 20171219
  Transmission Date: 20180321
  Serious: Yes (Disabling, Other)
  Sender: FDA-Public Use
  Company Number: GB-OTSUKA-20613980

PATIENT
  Sex: Female

DRUGS (2)
  1. LITHIUM. [Concomitant]
     Active Substance: LITHIUM
     Indication: BIPOLAR DISORDER
     Dosage: 600 MG, BID
     Route: 048
  2. ARIPIPRAZOLE. [Suspect]
     Active Substance: ARIPIPRAZOLE
     Indication: BIPOLAR DISORDER
     Dosage: 15 MG, QD
     Route: 048
     Dates: start: 20140203, end: 20140220

REACTIONS (3)
  - Agitation [Recovered/Resolved]
  - Hallucination, visual [Recovered/Resolved]
  - Off label use [Unknown]

NARRATIVE: CASE EVENT DATE: 20140217
